FAERS Safety Report 9128513 (Version 1)
Quarter: 2013Q1

REPORT INFORMATION
  Report Type: Spontaneous
  Country: GB (occurrence: GB)
  Receive Date: 20130125
  Receipt Date: 20130125
  Transmission Date: 20140127
  Serious: Yes (Disabling)
  Sender: FDA-Public Use
  Company Number: GB-PFIZER INC-2012292054

PATIENT
  Age: 90 Year
  Sex: Male

DRUGS (13)
  1. LIPITOR [Suspect]
     Indication: HYPERCHOLESTEROLAEMIA
     Dosage: 10 MG, AT NIGHT
     Route: 033
  2. ASPIRIN [Concomitant]
     Dosage: 75 MG, 1X/DAY IN THE MORNING
     Route: 033
  3. BAXTER WATER FOR IRRIGATION [Concomitant]
     Dosage: 500 ML, UNK
  4. CITALOPRAM [Concomitant]
     Dosage: 40 MG/ML, 0.5 ML, DAILY
     Route: 033
  5. DAKTACORT [Concomitant]
     Dosage: UNK, 2X/DAY
  6. EPANUTIN [Concomitant]
     Dosage: 50 ML, DAILY
     Route: 033
  7. GLANDOSANE [Concomitant]
     Dosage: 50 ML, UNK
  8. JEVITY [Concomitant]
     Dosage: 1000 ML, DAILY
  9. MINIMS ARTIFICIAL TEARS [Concomitant]
     Dosage: SINGLE 20 UNITS, 4X/DAY
  10. PARACETAMOL [Concomitant]
     Dosage: 500 MG ONE OR TWO, 4X/DAY
  11. SCOPODERM [Concomitant]
     Dosage: 1.5 MG, EVERY 72 HOURS
  12. SCOPODERM TTS [Concomitant]
     Dosage: 1.5 MG, UNK
  13. TRIMETHOPRIM [Concomitant]
     Dosage: 50 MG/ 5ML, TWO 5 ML, AT NIGHT

REACTIONS (1)
  - Dysphagia [Unknown]
